FAERS Safety Report 4951975-3 (Version None)
Quarter: 2006Q1

REPORT INFORMATION
  Report Type: 
  Country: None (occurrence: None)
  Receive Date: 20060320
  Receipt Date: 20060306
  Transmission Date: 20060701
  Serious: Yes (Death)
  Sender: FDA-Public Use
  Company Number: 2006033261

PATIENT
  Age: 48 Year
  Sex: Male

DRUGS (3)
  1. FELDENE [Suspect]
     Indication: OSTEOARTHRITIS
     Dosage: 40 MG (40 MG, 1), INTRAMUSCULAR
     Route: 030
  2. CELEBREX [Suspect]
     Indication: ILL-DEFINED DISORDER
  3. VITAMIN B COMPLEX CAP [Concomitant]

REACTIONS (1)
  - MOUTH ULCERATION [None]
